FAERS Safety Report 9564766 (Version 2)
Quarter: 2013Q4

REPORT INFORMATION
  Report Type: Report from Study
  Country: JP (occurrence: JP)
  Receive Date: 20130930
  Receipt Date: 20131025
  Transmission Date: 20140711
  Serious: Yes (Other)
  Sender: FDA-Public Use
  Company Number: JP-CELGENEUS-087-21660-13093895

PATIENT
  Age: 64 Year
  Sex: Male
  Weight: 55 kg

DRUGS (26)
  1. ABRAXANE [Suspect]
     Indication: PANCREATIC CARCINOMA
     Route: 041
     Dates: start: 20130710
  2. ABRAXANE [Suspect]
     Route: 041
     Dates: start: 20130807
  3. ABRAXANE [Suspect]
     Route: 065
     Dates: start: 20130814
  4. ABRAXANE [Suspect]
     Route: 065
     Dates: start: 20130821
  5. GEMCITABINE HYDROCHLORIDE [Suspect]
     Indication: PANCREATIC CARCINOMA
     Route: 041
     Dates: start: 20130710
  6. GEMCITABINE HYDROCHLORIDE [Suspect]
     Route: 041
     Dates: start: 20130807
  7. DEPAS [Concomitant]
     Indication: INSOMNIA
     Route: 048
  8. LENDORMIN D [Concomitant]
     Indication: INSOMNIA
     Route: 048
  9. DANTRIUM [Concomitant]
     Indication: INSOMNIA
     Route: 048
     Dates: end: 20130925
  10. SELBEX [Concomitant]
     Indication: GASTRITIS PROPHYLAXIS
     Route: 048
     Dates: end: 20130725
  11. LOXONIN [Concomitant]
     Indication: CANCER PAIN
     Route: 048
     Dates: start: 20130704
  12. VEEN-D [Concomitant]
     Indication: FLUID REPLACEMENT
     Dosage: 500 MILLILITER
     Route: 065
     Dates: start: 20130828
  13. VEEN-D [Concomitant]
     Indication: DYSGEUSIA
  14. VEEN-D [Concomitant]
     Indication: DECREASED APPETITE
  15. VITAMEDIN [Concomitant]
     Indication: FLUID REPLACEMENT
     Route: 041
     Dates: start: 20130828
  16. VITAMEDIN [Concomitant]
     Indication: DYSGEUSIA
  17. VITAMEDIN [Concomitant]
     Indication: DECREASED APPETITE
  18. PURSENNID [Concomitant]
     Indication: CONSTIPATION
     Route: 048
     Dates: start: 20130710
  19. MAGLAX [Concomitant]
     Indication: CONSTIPATION
     Route: 048
     Dates: start: 20130712
  20. LAXOBERON [Concomitant]
     Indication: INSOMNIA
     Route: 048
     Dates: start: 20130712
  21. OXINORM [Concomitant]
     Indication: INSOMNIA
     Route: 048
     Dates: start: 20130712
  22. NOVAMIN [Concomitant]
     Indication: NAUSEA
     Route: 048
     Dates: start: 20130724
  23. PARIET [Concomitant]
     Indication: PROPHYLAXIS
     Route: 048
     Dates: start: 20130731, end: 20130828
  24. OXYCONTIN [Concomitant]
     Indication: CANCER PAIN
     Route: 048
     Dates: start: 20130731
  25. PROMAC [Concomitant]
     Indication: DYSGEUSIA
     Route: 048
     Dates: start: 20130828, end: 20131008
  26. MUCOSTA [Concomitant]
     Indication: DYSGEUSIA
     Route: 048
     Dates: start: 20131008

REACTIONS (1)
  - Cystoid macular oedema [Not Recovered/Not Resolved]
